FAERS Safety Report 7944204-X (Version None)
Quarter: 2011Q4

REPORT INFORMATION
  Report Type: 
  Country: None (occurrence: None)
  Receive Date: 20111129
  Receipt Date: 20111117
  Transmission Date: 20120403
  Serious: Yes (Other)
  Sender: FDA-Public Use
  Company Number: US-BIOGENIDEC-2011BI044233

PATIENT
  Age: 42 Year
  Sex: Male

DRUGS (1)
  1. TYSABRI [Suspect]
     Indication: MULTIPLE SCLEROSIS
     Route: 042
     Dates: start: 20110524, end: 20111014

REACTIONS (11)
  - SEXUAL DYSFUNCTION [None]
  - CONVULSION [None]
  - BLADDER DISORDER [None]
  - PYREXIA [None]
  - ARTHRITIS [None]
  - RENAL CYST [None]
  - CELLULITIS [None]
  - OPTIC NEURITIS [None]
  - HYPOAESTHESIA [None]
  - ASTHENIA [None]
  - VISUAL IMPAIRMENT [None]
